FAERS Safety Report 12608611 (Version 1)
Quarter: 2016Q3

REPORT INFORMATION
  Report Type: Report from Study
  Country: JP (occurrence: JP)
  Receive Date: 20160729
  Receipt Date: 20160729
  Transmission Date: 20161109
  Serious: Yes (Life-Threatening, Hospitalization)
  Sender: FDA-Public Use
  Company Number: JP-PFIZER INC-2016360980

PATIENT
  Age: 65 Year
  Sex: Female
  Weight: 141 kg

DRUGS (15)
  1. LOXOPROFEN [Concomitant]
     Active Substance: LOXOPROFEN
     Route: 048
  2. MIYA-BM [Concomitant]
     Active Substance: CLOSTRIDIUM BUTYRICUM SPORES STRAIN M-55
     Dosage: UNK
     Route: 048
     Dates: start: 20151009
  3. AMITIZA [Concomitant]
     Active Substance: LUBIPROSTONE
     Dosage: UNK
     Route: 048
     Dates: start: 20151009
  4. XELJANZ [Suspect]
     Active Substance: TOFACITINIB CITRATE
     Indication: RHEUMATOID ARTHRITIS
     Dosage: 5 MG, 1X/DAY
     Route: 048
     Dates: start: 20150709
  5. MUCOSTA [Concomitant]
     Active Substance: REBAMIPIDE
     Route: 048
  6. AZULFIDINE [Concomitant]
     Active Substance: SULFASALAZINE
     Dosage: UNK
     Dates: end: 20150805
  7. CEREKINON [Concomitant]
     Active Substance: TRIMEBUTINE
     Dosage: UNK
     Route: 048
     Dates: start: 20151009
  8. MEDROL [Suspect]
     Active Substance: METHYLPREDNISOLONE
     Dosage: 4 MG, DAILY
  9. MEILAX [Concomitant]
     Active Substance: ETHYL LOFLAZEPATE
     Route: 048
  10. EPINASTINE [Concomitant]
     Active Substance: EPINASTINE
     Route: 048
  11. ALFACALCIDOL [Concomitant]
     Active Substance: ALFACALCIDOL
     Route: 048
  12. FERROMIA [Concomitant]
     Active Substance: FERROUS CITRATE
     Route: 048
  13. CAPISTEN [Suspect]
     Active Substance: KETOPROFEN
  14. NEXIUM [Concomitant]
     Active Substance: ESOMEPRAZOLE MAGNESIUM
     Route: 048
  15. EVISTA [Concomitant]
     Active Substance: RALOXIFENE HYDROCHLORIDE
     Dosage: UNK
     Route: 048
     Dates: start: 20151105

REACTIONS (5)
  - Gastric ulcer [Recovering/Resolving]
  - Spinal compression fracture [Recovering/Resolving]
  - Gastric ulcer haemorrhage [Recovered/Resolved]
  - Stress [None]
  - Injury [None]

NARRATIVE: CASE EVENT DATE: 20150731
